FAERS Safety Report 22943250 (Version 2)
Quarter: 2024Q2

REPORT INFORMATION
  Report Type: Spontaneous
  Country: CA (occurrence: CA)
  Receive Date: 20230914
  Receipt Date: 20240417
  Transmission Date: 20240716
  Serious: Yes (Other)
  Sender: FDA-Public Use
  Company Number: CA-PFIZER INC-202300198899

PATIENT
  Age: 17 Year
  Sex: Female
  Weight: 56 kg

DRUGS (4)
  1. RUXIENCE [Suspect]
     Active Substance: RITUXIMAB-PVVR
     Indication: Central nervous system vasculitis
     Dosage: 800 MG, ONCE
     Route: 042
     Dates: start: 20230907
  2. RUXIENCE [Suspect]
     Active Substance: RITUXIMAB-PVVR
     Dosage: 800 MG, ONCE
     Route: 042
     Dates: start: 20230907
  3. RUXIENCE [Suspect]
     Active Substance: RITUXIMAB-PVVR
     Dosage: 800 MG, X 1 DOSE(800MG, 7 MONTHS AND 4 DAYS)
     Route: 042
     Dates: start: 20240411, end: 20240411
  4. RUXIENCE [Suspect]
     Active Substance: RITUXIMAB-PVVR
     Dosage: 800 MG, X 1 DOSE(800MG, 7 MONTHS AND 4 DAYS)
     Route: 042
     Dates: start: 20240411, end: 20240411

REACTIONS (5)
  - Vein rupture [Recovered/Resolved]
  - Post-traumatic stress disorder [Recovered/Resolved]
  - Off label use [Unknown]
  - Off label use [Unknown]
  - Inappropriate schedule of product administration [Unknown]

NARRATIVE: CASE EVENT DATE: 20230907
